FAERS Safety Report 22171032 (Version 2)
Quarter: 2023Q2

REPORT INFORMATION
  Report Type: Report from Study
  Country: TW (occurrence: TW)
  Receive Date: 20230404
  Receipt Date: 20230411
  Transmission Date: 20230722
  Serious: Yes (Other)
  Sender: FDA-Public Use
  Company Number: TW-ROCHE-3235959

PATIENT
  Age: 83 Year
  Sex: Female

DRUGS (4)
  1. ERLOTINIB [Suspect]
     Active Substance: ERLOTINIB
     Indication: Non-small cell lung cancer
     Route: 048
  2. AVASTIN [Suspect]
     Active Substance: BEVACIZUMAB
     Indication: Non-small cell lung cancer
     Route: 041
  3. ESOMEPRAZOLE [Concomitant]
     Active Substance: ESOMEPRAZOLE
     Indication: Product used for unknown indication
     Route: 065
  4. Mopride [Concomitant]
     Indication: Product used for unknown indication
     Route: 065

REACTIONS (2)
  - Melaena [Recovering/Resolving]
  - Cachexia [Recovering/Resolving]
